FAERS Safety Report 15209570 (Version 1)
Quarter: 2018Q3

REPORT INFORMATION
  Report Type: Spontaneous
  Country: HR (occurrence: HR)
  Receive Date: 20180727
  Receipt Date: 20180727
  Transmission Date: 20181010
  Serious: Yes (Hospitalization, Other)
  Sender: FDA-Public Use
  Company Number: HR-JUBILANT CADISTA PHARMACEUTICALS-2018JUB00298

PATIENT
  Age: 53 Year
  Sex: Male

DRUGS (4)
  1. FLUPHENAZINE [Suspect]
     Active Substance: FLUPHENAZINE
     Indication: SCHIZOPHRENIA
     Dosage: 2.5 MG, UNK
     Route: 065
  2. QUETIAPINE. [Suspect]
     Active Substance: QUETIAPINE
     Indication: SCHIZOPHRENIA
     Dosage: UNK
     Route: 065
  3. CLONAZEPAM. [Concomitant]
     Active Substance: CLONAZEPAM
     Dosage: 2 MG, 1X/DAY
     Route: 048
  4. FLUPHENAZINE [Suspect]
     Active Substance: FLUPHENAZINE
     Dosage: 2.5 MG, 2X/DAY
     Route: 065

REACTIONS (1)
  - Drug-induced liver injury [Recovering/Resolving]
